FAERS Safety Report 10258241 (Version 2)
Quarter: 2014Q3

REPORT INFORMATION
  Report Type: Spontaneous
  Country: US (occurrence: None)
  Receive Date: 20140623
  Receipt Date: 20140721
  Transmission Date: 20150326
  Serious: Yes (Other)
  Sender: FDA-Public Use
  Company Number: 2014VER00029

PATIENT
  Age: 17 Year
  Sex: Male

DRUGS (1)
  1. MYORISAN [Suspect]
     Active Substance: ISOTRETINOIN
     Indication: ACNE
     Dates: start: 20131104, end: 20140424

REACTIONS (9)
  - Dry skin [None]
  - Lip dry [None]
  - Mood altered [None]
  - Dry eye [None]
  - Oral herpes [None]
  - Depression [None]
  - Anger [None]
  - Depressed mood [None]
  - Screaming [None]

NARRATIVE: CASE EVENT DATE: 20140523
